FAERS Safety Report 7658367-7 (Version None)
Quarter: 2011Q3

REPORT INFORMATION
  Report Type: 
  Country: None (occurrence: None)
  Receive Date: 20110805
  Receipt Date: 20110729
  Transmission Date: 20111222
  Serious: Yes (Other)
  Sender: FDA-Public Use
  Company Number: BR-JNJFOC-20110801138

PATIENT
  Sex: Female
  Weight: 77 kg

DRUGS (1)
  1. ORTHO EVRA [Suspect]
     Indication: CONTRACEPTION
     Dosage: 1 PATCH A WEEK, DURING 3 WEEKS FOLLOWED BY 1 PATCH FREE WEEK
     Route: 062

REACTIONS (1)
  - VARICOSE VEIN [None]
